FAERS Safety Report 17484313 (Version 2)
Quarter: 2020Q2

REPORT INFORMATION
  Report Type: Spontaneous
  Country: US (occurrence: US)
  Receive Date: 20200302
  Receipt Date: 20200408
  Transmission Date: 20200713
  Serious: Yes (Other)
  Sender: FDA-Public Use
  Company Number: US-PFIZER INC-2020090684

PATIENT
  Sex: Female

DRUGS (1)
  1. DEPO-PROVERA [Suspect]
     Active Substance: MEDROXYPROGESTERONE ACETATE
     Indication: ENDOMETRIOSIS
     Dosage: UNK

REACTIONS (8)
  - Product complaint [Unknown]
  - Condition aggravated [Unknown]
  - Product administration error [Unknown]
  - Product leakage [Unknown]
  - Product dose omission [Unknown]
  - Endometriosis [Unknown]
  - Off label use [Unknown]
  - Product use issue [Unknown]
